FAERS Safety Report 7149168-7 (Version None)
Quarter: 2010Q4

REPORT INFORMATION
  Report Type: 
  Country: None (occurrence: None)
  Receive Date: 20101209
  Receipt Date: 20101130
  Transmission Date: 20110411
  Serious: Yes (Other)
  Sender: FDA-Public Use
  Company Number: US-JNJCH-2010027654

PATIENT
  Age: 47 Year
  Sex: Female
  Weight: 73.5 kg

DRUGS (1)
  1. ROGAINE [Suspect]
     Indication: ALOPECIA
     Dosage: TEXT:^TO FILL LINE^ 2X PER DAY
     Route: 061
     Dates: start: 20101120, end: 20101123

REACTIONS (6)
  - APPLICATION SITE PUSTULES [None]
  - PARAESTHESIA [None]
  - PRURITUS [None]
  - RASH [None]
  - SKIN BURNING SENSATION [None]
  - WRONG DRUG ADMINISTERED [None]
